FAERS Safety Report 12085288 (Version 1)
Quarter: 2016Q1

REPORT INFORMATION
  Report Type: Spontaneous
  Country: US (occurrence: US)
  Receive Date: 20160217
  Receipt Date: 20160217
  Transmission Date: 20160526
  Serious: Yes (Other)
  Sender: FDA-Public Use
  Company Number: US-ACTAVIS-2016-03029

PATIENT
  Sex: Female
  Weight: 65 kg

DRUGS (5)
  1. ALLOPURINOL. [Concomitant]
     Active Substance: ALLOPURINOL
     Indication: GOUT
     Dosage: 100 MG, BID
     Route: 065
  2. REVATIO [Suspect]
     Active Substance: SILDENAFIL CITRATE
     Dosage: 3 TABLETS, DAILY
     Route: 048
     Dates: start: 201407
  3. REVATIO [Suspect]
     Active Substance: SILDENAFIL CITRATE
     Indication: PULMONARY HYPERTENSION
     Dosage: THREE 20 MG TABLETS, THREE TIMES A DAY
     Route: 048
     Dates: start: 201501
  4. GLIPIZIDE (WATSON LABORATORIES) [Suspect]
     Active Substance: GLIPIZIDE
     Dosage: 5 MG, UNKNOWN
     Route: 065
  5. GLIPIZIDE (WATSON LABORATORIES) [Suspect]
     Active Substance: GLIPIZIDE
     Indication: DIABETES MELLITUS
     Dosage: 10 MG, UNKNOWN
     Route: 065

REACTIONS (1)
  - Chronic kidney disease [Recovering/Resolving]

NARRATIVE: CASE EVENT DATE: 2015
